FAERS Safety Report 23105431 (Version 1)
Quarter: 2023Q4

REPORT INFORMATION
  Report Type: Spontaneous
  Country: US (occurrence: None)
  Receive Date: 20231023
  Receipt Date: 20231023
  Transmission Date: 20240109
  Serious: Yes (Hospitalization)
  Sender: FDA-Public Use
  Company Number: None

PATIENT
  Age: 73 Year
  Sex: Male
  Weight: 112 kg

DRUGS (1)
  1. INSULIN GLARGINE-YFGN [Suspect]
     Active Substance: INSULIN GLARGINE-YFGN
     Dosage: OTHER STRENGTH : 100UNIT/ML, 3ML;?FREQUENCY : DAILY;?
     Route: 058
     Dates: start: 20230315, end: 20230324

REACTIONS (2)
  - Impaired gastric emptying [None]
  - Gastroenteritis [None]

NARRATIVE: CASE EVENT DATE: 20230318
